FAERS Safety Report 16788968 (Version 1)
Quarter: 2019Q3

REPORT INFORMATION
  Report Type: Spontaneous
  Country: SE (occurrence: SE)
  Receive Date: 20190910
  Receipt Date: 20190910
  Transmission Date: 20191005
  Serious: Yes (Hospitalization)
  Sender: FDA-Public Use
  Company Number: SE-TEVA-2019-SE-1103894

PATIENT
  Age: 62 Year
  Sex: Female

DRUGS (4)
  1. IMOVANE [Suspect]
     Active Substance: ZOPICLONE
     Dosage: 52MG
     Route: 048
     Dates: start: 20190423, end: 20190423
  2. PROPAVAN [Suspect]
     Active Substance: PROPIOMAZINE
     Dosage: 350MG
     Route: 048
     Dates: start: 20190423, end: 20190423
  3. BISOPROLOL [Suspect]
     Active Substance: BISOPROLOL
     Dosage: 17.5MG
     Route: 048
     Dates: start: 20190423, end: 20190423
  4. LERGIGAN (PROMETHAZINE HYDROCHLORIDE) [Suspect]
     Active Substance: PROMETHAZINE HYDROCHLORIDE
     Dosage: 500MG
     Route: 048
     Dates: start: 20190423, end: 20190423

REACTIONS (3)
  - Fatigue [Unknown]
  - Intentional overdose [Unknown]
  - Intentional self-injury [Unknown]

NARRATIVE: CASE EVENT DATE: 20190423
